FAERS Safety Report 11135720 (Version 2)
Quarter: 2016Q2

REPORT INFORMATION
  Report Type: Report from Study
  Country: US (occurrence: US)
  Receive Date: 20150526
  Receipt Date: 20160516
  Transmission Date: 20160815
  Serious: No
  Sender: FDA-Public Use
  Company Number: US-MALLINCKRODT-T201501982

PATIENT
  Age: 51 Year
  Sex: Female

DRUGS (2)
  1. REPOSITORY CORTICOTROPIN INJECTION [Suspect]
     Active Substance: CORTICOTROPIN
     Dosage: 80 UNITS 2 TIMES A WEEK
     Route: 058
     Dates: start: 201510
  2. REPOSITORY CORTICOTROPIN INJECTION [Suspect]
     Active Substance: CORTICOTROPIN
     Indication: SYSTEMIC LUPUS ERYTHEMATOSUS
     Dosage: 80 UNITS TWICE PER WEEK
     Route: 058
     Dates: start: 20130101, end: 201508

REACTIONS (5)
  - Headache [Not Recovered/Not Resolved]
  - Arthralgia [Unknown]
  - Infection [Not Recovered/Not Resolved]
  - Blood cortisol decreased [Not Recovered/Not Resolved]
  - Proteinuria [Recovered/Resolved]

NARRATIVE: CASE EVENT DATE: 201503
